FAERS Safety Report 4631949-2 (Version None)
Quarter: 2005Q2

REPORT INFORMATION
  Report Type: 
  Country: None (occurrence: None)
  Receive Date: 20050411
  Receipt Date: 20040212
  Transmission Date: 20051028
  Serious: Yes (Other)
  Sender: FDA-Public Use
  Company Number: 200412650GDDC

PATIENT
  Sex: Female

DRUGS (6)
  1. CLEXANE [Suspect]
     Indication: ANTIPHOSPHOLIPID SYNDROME
     Dosage: DOSE: 40-60
     Route: 058
     Dates: start: 20031103, end: 20040301
  2. CLEXANE [Suspect]
     Indication: HYPERCOAGULATION
     Dosage: DOSE: 40-60
     Route: 058
     Dates: start: 20031103, end: 20040301
  3. FRAXIPARINE [Concomitant]
     Dosage: DOSE: 1 DOSAGE FORM
     Route: 058
     Dates: start: 20040301, end: 20040701
  4. ASPIRIN [Concomitant]
     Dosage: DOSE: UNK
     Route: 048
     Dates: start: 20030101
  5. FOLIC ACID [Concomitant]
     Dosage: DOSE: UNK
     Route: 048
     Dates: start: 20031101, end: 20040701
  6. CALCIUM CITRATE [Concomitant]
     Route: 048

REACTIONS (2)
  - ALOPECIA [None]
  - OSTEOPENIA [None]
